FAERS Safety Report 8588251-6 (Version None)
Quarter: 2012Q3

REPORT INFORMATION
  Report Type: 
  Country: None (occurrence: None)
  Receive Date: 20120813
  Receipt Date: 20120802
  Transmission Date: 20120928
  Serious: Yes (Hospitalization)
  Sender: FDA-Public Use
  Company Number: US-BAYER-201038914NA

PATIENT
  Age: 16 Year
  Sex: Female
  Weight: 72.562 kg

DRUGS (6)
  1. YAZ [Suspect]
     Indication: ACNE
  2. VITAMIN TAB [Concomitant]
     Dosage: UNK UNK, QD
  3. YAZ [Suspect]
     Indication: CONTRACEPTION
     Dosage: UNK
     Route: 048
     Dates: start: 20090401, end: 20090801
  4. YAZ [Suspect]
     Indication: PREMENSTRUAL SYNDROME
  5. ACETAMINOPHEN [Concomitant]
     Indication: HEADACHE
     Dosage: UNK UNK, PRN
  6. ANTIBIOTICS [Concomitant]

REACTIONS (8)
  - PARALYSIS [None]
  - LIP DISORDER [None]
  - CEREBROVASCULAR ACCIDENT [None]
  - HEMIPARESIS [None]
  - ASTHENIA [None]
  - SPEECH DISORDER [None]
  - EYE DISORDER [None]
  - MALAISE [None]
